FAERS Safety Report 14085153 (Version 1)
Quarter: 2017Q4

REPORT INFORMATION
  Report Type: Spontaneous
  Country: US (occurrence: US)
  Receive Date: 20171013
  Receipt Date: 20171013
  Transmission Date: 20180321
  Serious: Yes (Death)
  Sender: FDA-Public Use
  Company Number: US-ROCHE-2005407

PATIENT
  Sex: Male
  Weight: 88.8 kg

DRUGS (4)
  1. PROMETHAZINE HCL [Concomitant]
     Active Substance: PROMETHAZINE HYDROCHLORIDE
     Route: 054
     Dates: start: 20160811
  2. AVASTIN [Suspect]
     Active Substance: BEVACIZUMAB
     Indication: IMMUNE THROMBOCYTOPENIC PURPURA
     Route: 042
     Dates: start: 20160719, end: 20170811
  3. ONDASETRON [Concomitant]
     Active Substance: ONDANSETRON
     Route: 048
     Dates: start: 20160811
  4. METOPROLOL. [Concomitant]
     Active Substance: METOPROLOL
     Route: 048
     Dates: start: 20160811

REACTIONS (3)
  - Off label use [Fatal]
  - Death [Fatal]
  - Intentional product use issue [Fatal]
